FAERS Safety Report 17702569 (Version 1)
Quarter: 2020Q2

REPORT INFORMATION
  Report Type: Other
  Country: ES (occurrence: ES)
  Receive Date: 20200424
  Receipt Date: 20200424
  Transmission Date: 20200714
  Serious: Yes (Death, Hospitalization)
  Sender: FDA-Public Use
  Company Number: ES-CELLTRION INC.-2020ES021744

PATIENT

DRUGS (4)
  1. VENETOCLAX. [Suspect]
     Active Substance: VENETOCLAX
     Indication: PRODUCT USED FOR UNKNOWN INDICATION
     Dosage: UNK
     Route: 048
     Dates: start: 20200302, end: 20200323
  2. KALETRA [Suspect]
     Active Substance: LOPINAVIR\RITONAVIR
     Indication: CORONAVIRUS INFECTION
     Dosage: UNK
     Route: 065
     Dates: start: 202003
  3. KALETRA [Suspect]
     Active Substance: LOPINAVIR\RITONAVIR
     Indication: PNEUMONIA
     Dosage: UNK
  4. RITUXIMAB (UNKNOWN) [Suspect]
     Active Substance: RITUXIMAB
     Indication: PRODUCT USED FOR UNKNOWN INDICATION
     Dosage: UNK
     Route: 065
     Dates: start: 20200302

REACTIONS (3)
  - Off label use [Fatal]
  - Coronavirus infection [Fatal]
  - Pneumonia [Fatal]

NARRATIVE: CASE EVENT DATE: 202003
